FAERS Safety Report 16031950 (Version 8)
Quarter: 2020Q1

REPORT INFORMATION
  Report Type: Report from Study
  Country: US (occurrence: US)
  Receive Date: 20190304
  Receipt Date: 20200326
  Transmission Date: 20200409
  Serious: Yes (Other)
  Sender: FDA-Public Use
  Company Number: PHEH2019US009296

PATIENT
  Age: 13 Year
  Sex: Female
  Weight: 50.7 kg

DRUGS (1)
  1. GILENYA [Suspect]
     Active Substance: FINGOLIMOD HYDROCHLORIDE
     Indication: MULTIPLE SCLEROSIS
     Dosage: 0.5 MG, QD
     Route: 048
     Dates: start: 20181127

REACTIONS (16)
  - Sinusitis [Unknown]
  - Confusional state [Recovered/Resolved]
  - Scar [Unknown]
  - Pupillary disorder [Recovered/Resolved]
  - Hypoaesthesia [Recovered/Resolved]
  - Pain [Recovered/Resolved]
  - JC polyomavirus test positive [Unknown]
  - Diarrhoea [Recovered/Resolved]
  - Blindness [Recovered/Resolved]
  - Paraplegia [Recovered/Resolved]
  - Vomiting [Recovered/Resolved]
  - Bronchitis [Unknown]
  - Paresis [Recovered/Resolved]
  - Multiple sclerosis relapse [Recovered/Resolved]
  - Pupillary reflex impaired [Recovered/Resolved]
  - Influenza [Recovered/Resolved]

NARRATIVE: CASE EVENT DATE: 201904
